FAERS Safety Report 14250829 (Version 5)
Quarter: 2023Q1

REPORT INFORMATION
  Report Type: Spontaneous
  Country: US (occurrence: US)
  Receive Date: 20171205
  Receipt Date: 20230105
  Transmission Date: 20230418
  Serious: Yes (Other)
  Sender: FDA-Public Use
  Company Number: US-PFIZER INC-2017130954

PATIENT
  Age: 65 Year
  Sex: Female

DRUGS (1)
  1. XELJANZ XR [Suspect]
     Active Substance: TOFACITINIB CITRATE
     Indication: Rheumatoid arthritis
     Dosage: 11 MG, 1X/DAY (1 TABLET ORALLY ONCE A DAY)
     Route: 048

REACTIONS (7)
  - Hip fracture [Unknown]
  - Spinal disorder [Unknown]
  - Drug hypersensitivity [Unknown]
  - Pain [Unknown]
  - Pain in extremity [Unknown]
  - Sensitivity to weather change [Unknown]
  - COVID-19 [Unknown]

NARRATIVE: CASE EVENT DATE: 20210101
